FAERS Safety Report 8046407-5 (Version None)
Quarter: 2012Q1

REPORT INFORMATION
  Report Type: 
  Country: None (occurrence: None)
  Receive Date: 20120113
  Receipt Date: 20120109
  Transmission Date: 20120608
  Serious: Yes (Other)
  Sender: FDA-Public Use
  Company Number: FR-ASTRAZENECA-2012SE01696

PATIENT
  Age: 51 Year
  Sex: Male

DRUGS (2)
  1. PRAZEPAM [Concomitant]
  2. QUETIAPINE FUMARATE [Suspect]
     Route: 048
     Dates: start: 20111201

REACTIONS (1)
  - JAUNDICE [None]
